FAERS Safety Report 6417878-2 (Version None)
Quarter: 2009Q4

REPORT INFORMATION
  Report Type: 
  Country: None (occurrence: None)
  Receive Date: 20091028
  Receipt Date: 20091023
  Transmission Date: 20100525
  Serious: Yes (Life-Threatening, Hospitalization, Disabling, Other)
  Sender: FDA-Public Use
  Company Number: A0813182A

PATIENT
  Age: 67 Year
  Sex: Male

DRUGS (10)
  1. ARIXTRA [Suspect]
     Dosage: 2.5MG PER DAY
     Route: 058
     Dates: start: 20091007, end: 20091015
  2. LYRICA [Concomitant]
  3. MICARDIS HCT [Concomitant]
  4. CELEBREX [Concomitant]
  5. ZETIA [Concomitant]
  6. ACETAMINOPHEN [Concomitant]
  7. UNKNOWN MEDICATION [Concomitant]
  8. TAMIFLU [Concomitant]
  9. OXYCODONE [Concomitant]
  10. ASPIRIN [Concomitant]

REACTIONS (5)
  - CEREBROVASCULAR ACCIDENT [None]
  - COAGULOPATHY [None]
  - DRUG SPECIFIC ANTIBODY PRESENT [None]
  - THROMBOCYTOPENIA [None]
  - UNEVALUABLE EVENT [None]
